FAERS Safety Report 17413734 (Version 1)
Quarter: 2020Q1

REPORT INFORMATION
  Report Type: Spontaneous
  Country: US (occurrence: US)
  Receive Date: 20200130
  Receipt Date: 20200130
  Transmission Date: 20200409
  Serious: No
  Sender: FDA-Public Use
  Company Number: None

PATIENT
  Age: 83 Year
  Sex: Male

DRUGS (1)
  1. EMPAGLIFLOZIN (EMPAGLIFLOZIN 25MG TAB) [Suspect]
     Active Substance: EMPAGLIFLOZIN
     Indication: DIABETES MELLITUS
     Route: 048
     Dates: start: 20181025, end: 20200106

REACTIONS (1)
  - Pollakiuria [None]

NARRATIVE: CASE EVENT DATE: 20200106
